FAERS Safety Report 22920638 (Version 6)
Quarter: 2025Q1

REPORT INFORMATION
  Report Type: Report from Study
  Country: CA (occurrence: CA)
  Receive Date: 20230908
  Receipt Date: 20250215
  Transmission Date: 20250408
  Serious: Yes (Hospitalization, Other)
  Sender: IPSEN BIOPHARMACEUTICALS, INC.
  Company Number: CA-KOREA IPSEN Pharma-2023-07887

PATIENT
  Age: 42 Year
  Sex: Male
  Weight: 89 kg

DRUGS (4)
  1. LANREOTIDE ACETATE [Suspect]
     Active Substance: LANREOTIDE ACETATE
     Indication: Gastroenteropancreatic neuroendocrine tumour disease
     Dosage: 120 MG. Q4WEEKS, DEEP SC
     Route: 058
     Dates: start: 20230227
  2. LANREOTIDE ACETATE [Suspect]
     Active Substance: LANREOTIDE ACETATE
     Dosage: 120 MG Q3 WEEKS, DEEP SC
     Route: 058
  3. LANREOTIDE ACETATE [Suspect]
     Active Substance: LANREOTIDE ACETATE
     Dosage: DEEP SUBCUTANEOUS
     Route: 058
     Dates: start: 20230901
  4. AMLODIPINE [Concomitant]
     Active Substance: AMLODIPINE BESYLATE
     Route: 048

REACTIONS (26)
  - Diarrhoea [Recovered/Resolved]
  - Small intestine carcinoma [Recovering/Resolving]
  - Lymphadenopathy [Recovering/Resolving]
  - Nausea [Recovered/Resolved]
  - Decreased appetite [Recovered/Resolved]
  - Hot flush [Not Recovered/Not Resolved]
  - Fatigue [Recovered/Resolved]
  - Oropharyngeal pain [Recovering/Resolving]
  - Nasal congestion [Recovering/Resolving]
  - Fatigue [Unknown]
  - Injection site pain [Recovered/Resolved]
  - Skin mass [Unknown]
  - Hypertension [Recovered/Resolved]
  - Dehydration [Unknown]
  - Nausea [Not Recovered/Not Resolved]
  - Hot flush [Not Recovered/Not Resolved]
  - Diarrhoea [Recovered/Resolved]
  - Faeces discoloured [Recovered/Resolved]
  - Nausea [Recovered/Resolved]
  - Erythema [Recovered/Resolved]
  - Diarrhoea [Recovered/Resolved]
  - Diarrhoea [Recovered/Resolved]
  - Diarrhoea [Not Recovered/Not Resolved]
  - Intestinal mucosal atrophy [Recovered/Resolved]
  - Nausea [Not Recovered/Not Resolved]
  - Off label use [Unknown]

NARRATIVE: CASE EVENT DATE: 20230227
